FAERS Safety Report 7124069-9 (Version None)
Quarter: 2010Q4

REPORT INFORMATION
  Report Type: 
  Country: None (occurrence: None)
  Receive Date: 20101126
  Receipt Date: 20101116
  Transmission Date: 20110411
  Serious: Yes (Death)
  Sender: FDA-Public Use
  Company Number: JP-PFIZER INC-2010015476

PATIENT
  Age: 90 Year
  Sex: Male
  Weight: 52 kg

DRUGS (1)
  1. CELECOXIB [Suspect]
     Indication: OSTEOARTHRITIS
     Dosage: 200 MG, UNKNOWN/D
     Route: 048
     Dates: start: 20080730, end: 20090407

REACTIONS (1)
  - PNEUMONIA BACTERIAL [None]
